FAERS Safety Report 11168776 (Version 2)
Quarter: 2019Q1

REPORT INFORMATION
  Report Type: Spontaneous
  Country: US (occurrence: US)
  Receive Date: 20150605
  Receipt Date: 20190221
  Transmission Date: 20190417
  Serious: Yes (Hospitalization, Other)
  Sender: FDA-Public Use
  Company Number: US-PFIZER INC-2015187461

PATIENT
  Age: 51 Year
  Sex: Female
  Weight: 67 kg

DRUGS (2)
  1. LYRICA [Suspect]
     Active Substance: PREGABALIN
     Indication: MENISCUS INJURY
     Dosage: 75 MG, 4X/DAY
  2. LYRICA [Suspect]
     Active Substance: PREGABALIN
     Dosage: 75 MG, 2X/DAY

REACTIONS (3)
  - Knee deformity [Unknown]
  - Product use in unapproved indication [Unknown]
  - Arthropathy [Unknown]

NARRATIVE: CASE EVENT DATE: 20150216
